FAERS Safety Report 21243940 (Version 2)
Quarter: 2022Q3

REPORT INFORMATION
  Report Type: Report from Study
  Country: FR (occurrence: FR)
  Receive Date: 20220823
  Receipt Date: 20220826
  Transmission Date: 20221026
  Serious: Yes (Other)
  Sender: FDA-Public Use
  Company Number: FR-JNJFOC-20220321668

PATIENT

DRUGS (4)
  1. REMICADE [Suspect]
     Active Substance: INFLIXIMAB
     Indication: Crohn^s disease
     Route: 041
  2. STELARA [Suspect]
     Active Substance: USTEKINUMAB
     Indication: Crohn^s disease
     Route: 042
  3. STELARA [Suspect]
     Active Substance: USTEKINUMAB
     Route: 042
  4. ADALIMUMAB [Suspect]
     Active Substance: ADALIMUMAB
     Indication: Crohn^s disease
     Route: 065

REACTIONS (9)
  - Neoplasm malignant [Unknown]
  - Adverse reaction [Unknown]
  - Infection [Unknown]
  - Abdominal pain [Unknown]
  - Arthralgia [Unknown]
  - Infusion related reaction [Unknown]
  - Headache [Unknown]
  - Skin lesion [Unknown]
  - Treatment failure [Unknown]
